FAERS Safety Report 15259101 (Version 1)
Quarter: 2018Q3

REPORT INFORMATION
  Report Type: Spontaneous
  Country: JP (occurrence: JP)
  Receive Date: 20180809
  Receipt Date: 20180809
  Transmission Date: 20181010
  Serious: Yes (Death)
  Sender: FDA-Public Use
  Company Number: JP-TEVA-2018-JP-938504

PATIENT

DRUGS (4)
  1. HEPARIN [Suspect]
     Active Substance: HEPARIN SODIUM
     Indication: PULMONARY EMBOLISM
     Route: 064
  2. MONTEPLASE [Suspect]
     Active Substance: MONTEPLASE
     Indication: SHOCK
  3. ADRENALINE [Concomitant]
     Active Substance: EPINEPHRINE
     Indication: CARDIO-RESPIRATORY ARREST
     Route: 064
  4. MONTEPLASE [Suspect]
     Active Substance: MONTEPLASE
     Indication: PULMONARY EMBOLISM
     Dosage: TWO DOSES
     Route: 064

REACTIONS (1)
  - Hydrops foetalis [Fatal]
